FAERS Safety Report 8181376-9 (Version None)
Quarter: 2012Q1

REPORT INFORMATION
  Report Type: 
  Country: None (occurrence: None)
  Receive Date: 20120302
  Receipt Date: 20120220
  Transmission Date: 20120608
  Serious: Yes (Hospitalization)
  Sender: FDA-Public Use
  Company Number: US-BAYER-2011-029239

PATIENT
  Age: 22 Year
  Sex: Female
  Weight: 155 kg

DRUGS (7)
  1. YAZ [Suspect]
     Indication: PREMENSTRUAL SYNDROME
  2. ASCORBIC ACID [Concomitant]
     Indication: IRON DEFICIENCY ANAEMIA
  3. WYSTAL [Concomitant]
  4. IRON [Concomitant]
     Indication: IRON DEFICIENCY ANAEMIA
  5. YAZ [Suspect]
     Indication: CONTRACEPTION
     Dosage: UNK
     Dates: start: 20080101, end: 20090124
  6. YAZ [Suspect]
     Indication: MENSTRUATION IRREGULAR
  7. ADIPEX [Concomitant]
     Indication: WEIGHT DECREASED
     Dosage: UNK
     Dates: start: 20090125, end: 20090125

REACTIONS (6)
  - DEEP VEIN THROMBOSIS [None]
  - ANXIETY [None]
  - FEAR OF DISEASE [None]
  - PULMONARY EMBOLISM [None]
  - EMOTIONAL DISTRESS [None]
  - PAIN [None]
